FAERS Safety Report 8991166 (Version 1)
Quarter: 2012Q4

REPORT INFORMATION
  Report Type: Spontaneous
  Country: US (occurrence: None)
  Receive Date: 20121219
  Receipt Date: 20121219
  Transmission Date: 20130627
  Serious: Yes (Life-Threatening, Hospitalization)
  Sender: FDA-Public Use
  Company Number: SPI201200329

PATIENT
  Age: 45 Year
  Sex: Female

DRUGS (1)
  1. AMITIZA [Suspect]
     Route: 048
     Dates: start: 2012, end: 20121206

REACTIONS (4)
  - Anaphylactic reaction [None]
  - Throat irritation [None]
  - Drug ineffective [None]
  - Cyanosis [None]
